FAERS Safety Report 4511261-2 (Version None)
Quarter: 2004Q4

REPORT INFORMATION
  Report Type: 
  Country: None (occurrence: None)
  Receive Date: 20041122
  Receipt Date: 20041122
  Transmission Date: 20050328
  Serious: Yes (Death)
  Sender: FDA-Public Use
  Company Number: None

PATIENT
  Age: 71 Year
  Sex: Female
  Weight: 68.0396 kg

DRUGS (6)
  1. PERMAX [Suspect]
     Indication: PARKINSON'S DISEASE
     Dosage: 1.5 MG TWICE DAILY  ORAL :  1 MG ONCE DAILY ORAL
     Route: 048
     Dates: start: 20000101, end: 20040512
  2. SINEMET [Concomitant]
  3. COMTAN [Concomitant]
  4. AMANTADINE [Concomitant]
  5. ZOLOFT [Concomitant]
  6. KLONOPIN [Concomitant]

REACTIONS (4)
  - ECHOCARDIOGRAM ABNORMAL [None]
  - PERICARDIAL EFFUSION [None]
  - PULMONARY FIBROSIS [None]
  - TRICUSPID VALVE INCOMPETENCE [None]
